FAERS Safety Report 4984712-7 (Version None)
Quarter: 2006Q2

REPORT INFORMATION
  Report Type: 
  Country: None (occurrence: None)
  Receive Date: 20060426
  Receipt Date: 20060426
  Transmission Date: 20061013
  Serious: Yes (Hospitalization)
  Sender: FDA-Public Use
  Company Number: None

PATIENT
  Age: 70 Year
  Sex: Male
  Weight: 112.4921 kg

DRUGS (2)
  1. CARVEDILOL [Suspect]
     Indication: CORONARY ARTERY DISEASE
     Dosage: 12.5 MG BID
     Dates: start: 20060316
  2. DILTIAZEM [Suspect]
     Indication: HYPERTENSION
     Dosage: 240 IN AM 120 IN PM

REACTIONS (2)
  - ASTHENIA [None]
  - BRADYCARDIA [None]
